FAERS Safety Report 5497733-5 (Version None)
Quarter: 2007Q4

REPORT INFORMATION
  Report Type: 
  Country: None (occurrence: None)
  Receive Date: 20071025
  Receipt Date: 20070215
  Transmission Date: 20080405
  Serious: No
  Sender: FDA-Public Use
  Company Number: A0639726A

PATIENT
  Sex: Female

DRUGS (2)
  1. ADVAIR DISKUS 100/50 [Suspect]
     Indication: PNEUMONIA
     Dosage: 1PUFF TWICE PER DAY
     Route: 055
     Dates: start: 20070126
  2. ALBUTEROL [Concomitant]

REACTIONS (3)
  - EXPIRED DRUG ADMINISTERED [None]
  - HEADACHE [None]
  - THROAT IRRITATION [None]
